FAERS Safety Report 10600595 (Version 1)
Quarter: 2014Q4

REPORT INFORMATION
  Report Type: Spontaneous
  Country: MY (occurrence: MY)
  Receive Date: 20141124
  Receipt Date: 20141124
  Transmission Date: 20150529
  Serious: Yes (Death, Other)
  Sender: FDA-Public Use
  Company Number: MY-009507513-1411MYS007782

PATIENT
  Age: 73 Year
  Sex: Male

DRUGS (1)
  1. COZAAR [Suspect]
     Active Substance: LOSARTAN POTASSIUM
     Indication: HYPERTENSION
     Dosage: 1 DF, QD
     Route: 048
     Dates: end: 20141114

REACTIONS (8)
  - Haemoptysis [Unknown]
  - Weight decreased [Unknown]
  - Lung carcinoma cell type unspecified stage IV [Fatal]
  - Muscular weakness [Unknown]
  - Pain in extremity [Unknown]
  - Blood pressure decreased [Unknown]
  - Decreased appetite [Unknown]
  - Drug dose omission [Unknown]

NARRATIVE: CASE EVENT DATE: 2014
